FAERS Safety Report 25895446 (Version 1)
Quarter: 2025Q4

REPORT INFORMATION
  Report Type: Other
  Country: QA (occurrence: QA)
  Receive Date: 20251008
  Receipt Date: 20251008
  Transmission Date: 20260117
  Serious: Yes (Other)
  Sender: APRECIA PHARMACEUTICALS
  Company Number: QA-Aprecia Pharmaceuticals-APRE20250233

PATIENT
  Age: 29 Year
  Sex: Male

DRUGS (5)
  1. LEVETIRACETAM [Suspect]
     Active Substance: LEVETIRACETAM
     Indication: Generalised tonic-clonic seizure
     Dosage: 500 MG IV TWICE DAILY.
     Route: 042
  2. LEVETIRACETAM [Suspect]
     Active Substance: LEVETIRACETAM
     Dosage: 500 MG BID.
     Route: 048
  3. SERTRALINE [Concomitant]
     Active Substance: SERTRALINE HYDROCHLORIDE
     Dosage: 50 MG ORAL DAILY.
     Route: 048
  4. CLOZAPINE [Concomitant]
     Active Substance: CLOZAPINE
     Dosage: 0.5 MG ORAL ONCE A DAY.
     Route: 048
  5. LORAZEPAM [Concomitant]
     Active Substance: LORAZEPAM
     Dosage: SINGLE DOSE, 2 MG

REACTIONS (1)
  - Rhabdomyolysis [Recovering/Resolving]
